FAERS Safety Report 9329125 (Version 1)
Quarter: 2013Q2

REPORT INFORMATION
  Report Type: Spontaneous
  Country: US (occurrence: US)
  Receive Date: 20130604
  Receipt Date: 20130604
  Transmission Date: 20140414
  Serious: No
  Sender: FDA-Public Use
  Company Number: US-SANOFI-AVENTIS-2012SA073632

PATIENT
  Age: 62 Year
  Sex: Male
  Weight: 91 kg

DRUGS (9)
  1. LANTUS SOLOSTAR [Suspect]
     Indication: TYPE 2 DIABETES MELLITUS
     Dosage: DOSE:20 UNIT(S)
     Route: 058
     Dates: start: 20120601
  2. SOLOSTAR [Suspect]
     Indication: TYPE 2 DIABETES MELLITUS
     Dates: start: 20120601
  3. METFORMIN [Concomitant]
     Indication: DIABETES MELLITUS
     Dates: start: 2000
  4. METOPROLOL [Concomitant]
     Indication: BLOOD PRESSURE
     Dates: start: 2010
  5. VERAPAMIL [Concomitant]
     Indication: ATRIAL FIBRILLATION
     Dates: start: 2010
  6. VALSARTAN [Concomitant]
     Indication: ATRIAL FIBRILLATION
     Dates: start: 2010
  7. CLONIDINE [Concomitant]
     Indication: BLOOD PRESSURE
     Dates: start: 1990
  8. GUANFACINE [Concomitant]
     Indication: BLOOD PRESSURE
     Dates: start: 2010
  9. POTASSIUM [Concomitant]

REACTIONS (1)
  - Blood potassium decreased [Unknown]
